FAERS Safety Report 5031550-5 (Version None)
Quarter: 2006Q2

REPORT INFORMATION
  Report Type: 
  Country: None (occurrence: None)
  Receive Date: 20060621
  Receipt Date: 20050224
  Transmission Date: 20061013
  Serious: Yes (Hospitalization, Disabling)
  Sender: FDA-Public Use
  Company Number: US-ROCHE-396806

PATIENT
  Age: 20 Year
  Sex: Male
  Weight: 59 kg

DRUGS (3)
  1. ACCUTANE [Suspect]
     Route: 048
     Dates: start: 19960822, end: 19960905
  2. ACCUTANE [Suspect]
     Route: 048
     Dates: start: 19960905, end: 19961010
  3. ACCUTANE [Suspect]
     Route: 048
     Dates: start: 19961025, end: 19970203

REACTIONS (55)
  - ALANINE AMINOTRANSFERASE INCREASED [None]
  - ANAEMIA [None]
  - ANAL FISTULA [None]
  - ANOREXIA [None]
  - ANXIETY [None]
  - ASPARTATE AMINOTRANSFERASE INCREASED [None]
  - BRONCHITIS [None]
  - CARBON DIOXIDE INCREASED [None]
  - CHILLS [None]
  - CHRONIC FATIGUE SYNDROME [None]
  - CROHN'S DISEASE [None]
  - DEPRESSION [None]
  - DRUG HYPERSENSITIVITY [None]
  - DRUG INEFFECTIVE [None]
  - DYSPNOEA [None]
  - EPIDIDYMITIS [None]
  - EPISTAXIS [None]
  - EXCORIATION [None]
  - EXPOSURE TO COMMUNICABLE DISEASE [None]
  - FALL [None]
  - FATIGUE [None]
  - FEELING HOT [None]
  - GASTROINTESTINAL DISORDER [None]
  - HEADACHE [None]
  - HEART RATE INCREASED [None]
  - HEART RATE IRREGULAR [None]
  - HYPOVOLAEMIA [None]
  - ILL-DEFINED DISORDER [None]
  - INFLAMMATORY BOWEL DISEASE [None]
  - INSOMNIA [None]
  - INTESTINAL HAEMORRHAGE [None]
  - LARYNGITIS [None]
  - LEGAL PROBLEM [None]
  - LIP DRY [None]
  - LIVER DISORDER [None]
  - MULTI-ORGAN DISORDER [None]
  - MYALGIA [None]
  - NAUSEA [None]
  - NERVOUSNESS [None]
  - NIGHT BLINDNESS [None]
  - NIGHT SWEATS [None]
  - PALPITATIONS [None]
  - PHARYNGITIS [None]
  - PHARYNGOLARYNGEAL PAIN [None]
  - POSTOPERATIVE ILEUS [None]
  - POSTOPERATIVE STITCH SINUS [None]
  - PYREXIA [None]
  - RECTAL HAEMORRHAGE [None]
  - SINUS TACHYCARDIA [None]
  - SINUSITIS [None]
  - SUICIDAL IDEATION [None]
  - UPPER RESPIRATORY TRACT INFECTION [None]
  - VIRAL UPPER RESPIRATORY TRACT INFECTION [None]
  - VISUAL DISTURBANCE [None]
  - WEIGHT DECREASED [None]
